FAERS Safety Report 13689107 (Version 1)
Quarter: 2017Q2

REPORT INFORMATION
  Report Type: Spontaneous
  Country: US (occurrence: US)
  Receive Date: 20170626
  Receipt Date: 20170626
  Transmission Date: 20170830
  Serious: No
  Sender: FDA-Public Use
  Company Number: US-009507513-1706USA007247

PATIENT
  Age: 41 Year
  Sex: Female
  Weight: 62.59 kg

DRUGS (1)
  1. NEXPLANON [Suspect]
     Active Substance: ETONOGESTREL
     Indication: CONTRACEPTION
     Dosage: ONE IMPLANT EVERY 3 YEARS, LEFT ARM
     Route: 059
     Dates: start: 201411

REACTIONS (2)
  - Implant site pain [Unknown]
  - Expired product administered [Unknown]

NARRATIVE: CASE EVENT DATE: 20170401
